FAERS Safety Report 12463452 (Version 1)
Quarter: 2016Q2

REPORT INFORMATION
  Report Type: Spontaneous
  Country: US (occurrence: None)
  Receive Date: 20160613
  Receipt Date: 20160613
  Transmission Date: 20160815
  Serious: Yes (Disabling, Other)
  Sender: FDA-Public Use
  Company Number: None

PATIENT
  Age: 51 Year
  Sex: Female
  Weight: 69.85 kg

DRUGS (4)
  1. TIZANIDINE DR. REDDY^S, 2 MG [Suspect]
     Active Substance: TIZANIDINE
     Indication: MIGRAINE
     Dosage: 150 TABLET(S) THREE TIMES A DAY TAKEN BY MOUTH
     Route: 048
     Dates: start: 20160303
  2. CIPROFLOXACIN, 250 MG [Suspect]
     Active Substance: CIPROFLOXACIN
     Indication: URINARY TRACT INFECTION
     Dosage: 4 TABLET(S) EVERY 12 HOURS TAKEN BY MOUTH
     Route: 048
     Dates: start: 20160413, end: 20160417
  3. BIOTIN [Concomitant]
     Active Substance: BIOTIN
  4. MULTI-VITAMINS (CALCIUM PANTOTHENATE, FOLIC ACID, VITAMINS NOS) [Concomitant]
     Active Substance: VITAMINS

REACTIONS (14)
  - Contraindicated drug administered [None]
  - Vomiting projectile [None]
  - Chest pain [None]
  - Paraesthesia [None]
  - Drug dispensing error [None]
  - Dysuria [None]
  - Pelvic pain [None]
  - Bladder discomfort [None]
  - Drug prescribing error [None]
  - Drug interaction [None]
  - Drug monitoring procedure not performed [None]
  - Migraine [None]
  - Hypotension [None]
  - Abdominal pain upper [None]

NARRATIVE: CASE EVENT DATE: 20160417
